FAERS Safety Report 8414134-8 (Version None)
Quarter: 2012Q2

REPORT INFORMATION
  Report Type: 
  Country: None (occurrence: None)
  Receive Date: 20120605
  Receipt Date: 20120522
  Transmission Date: 20120825
  Serious: No
  Sender: FDA-Public Use
  Company Number: PR-ASTRAZENECA-2012SE33092

PATIENT
  Age: 65 Year
  Sex: Female

DRUGS (12)
  1. AMLODIPINE BESYLATE [Concomitant]
  2. LANTUS [Concomitant]
  3. ATACAND [Suspect]
     Indication: HYPERTENSION
     Route: 048
  4. EPIVIR [Concomitant]
  5. SYNTHROID [Concomitant]
  6. DILTIAZEM [Concomitant]
  7. VIRACEPT [Concomitant]
  8. ISENTRESS [Concomitant]
  9. CRESTOR [Concomitant]
  10. HUMULIN R [Concomitant]
  11. ASPIRIN [Concomitant]
  12. INSULIN [Concomitant]

REACTIONS (1)
  - RENAL FAILURE CHRONIC [None]
